FAERS Safety Report 10214507 (Version 1)
Quarter: 2014Q2

REPORT INFORMATION
  Report Type: Spontaneous
  Country: US (occurrence: None)
  Receive Date: 20140602
  Receipt Date: 20140602
  Transmission Date: 20141212
  Serious: No
  Sender: FDA-Public Use
  Company Number: None

PATIENT
  Age: 66 Year
  Sex: Male
  Weight: 141 kg

DRUGS (1)
  1. SAXAGLIPTIN [Suspect]
     Indication: DIABETES MELLITUS
     Route: 048
     Dates: start: 20140314, end: 20140409

REACTIONS (7)
  - Blood creatinine increased [None]
  - Glomerular filtration rate decreased [None]
  - Swelling [None]
  - Weight decreased [None]
  - Dyspnoea exertional [None]
  - Fatigue [None]
  - Renal failure acute [None]
